FAERS Safety Report 9204588 (Version 1)
Quarter: 2013Q2

REPORT INFORMATION
  Report Type: Spontaneous
  Country: US (occurrence: None)
  Receive Date: 20130401
  Receipt Date: 20130401
  Transmission Date: 20140414
  Serious: No
  Sender: FDA-Public Use
  Company Number: None

PATIENT
  Sex: Male

DRUGS (1)
  1. LEVOTHYROXINE [Suspect]

REACTIONS (5)
  - Blood thyroid stimulating hormone increased [None]
  - Product substitution issue [None]
  - Thyroxine free increased [None]
  - Blood thyroid stimulating hormone decreased [None]
  - Hyperthyroidism [None]
